FAERS Safety Report 9202078 (Version 4)
Quarter: 2013Q2

REPORT INFORMATION
  Report Type: Spontaneous
  Country: DE (occurrence: None)
  Receive Date: 20130328
  Receipt Date: 20130419
  Transmission Date: 20140414
  Serious: Yes (Death)
  Sender: FDA-Public Use
  Company Number: TPG2013A00326

PATIENT
  Age: 86 Year
  Sex: Female

DRUGS (1)
  1. EDARBI [Suspect]
     Indication: ESSENTIAL HYPERTENSION
     Dosage: STOPPED
     Route: 048
     Dates: start: 201203

REACTIONS (1)
  - Death [None]
